FAERS Safety Report 18633790 (Version 1)
Quarter: 2020Q4

REPORT INFORMATION
  Report Type: Spontaneous
  Country: CN (occurrence: CN)
  Receive Date: 20201218
  Receipt Date: 20201218
  Transmission Date: 20210114
  Serious: Yes (Other)
  Sender: FDA-Public Use
  Company Number: CN-ROCHE-2735184

PATIENT
  Age: 36 Year
  Sex: Female
  Weight: 47 kg

DRUGS (5)
  1. PACLITAXEL LIPOSOME [Suspect]
     Active Substance: PACLITAXEL
     Indication: CERVIX CARCINOMA
     Route: 041
     Dates: start: 20201126, end: 20201126
  2. CARBOPLATIN. [Suspect]
     Active Substance: CARBOPLATIN
     Indication: CERVIX CARCINOMA
     Route: 041
     Dates: start: 20201126, end: 20201126
  3. AVASTIN [Suspect]
     Active Substance: BEVACIZUMAB
     Indication: CERVIX CARCINOMA
     Route: 041
     Dates: start: 20201125, end: 20201125
  4. GLUCOSE [Concomitant]
     Active Substance: DEXTROSE
     Indication: CERVIX CARCINOMA
     Route: 041
     Dates: start: 20201126, end: 20201126
  5. SODIUM CHLORIDE. [Concomitant]
     Active Substance: SODIUM CHLORIDE
     Indication: CERVIX CARCINOMA
     Route: 041
     Dates: start: 20201125, end: 20201125

REACTIONS (3)
  - Intentional product use issue [Unknown]
  - Off label use [Unknown]
  - White blood cell count decreased [Recovered/Resolved]

NARRATIVE: CASE EVENT DATE: 20201202
